FAERS Safety Report 25037197 (Version 1)
Quarter: 2025Q1

REPORT INFORMATION
  Report Type: Spontaneous
  Country: US (occurrence: US)
  Receive Date: 20250304
  Receipt Date: 20250304
  Transmission Date: 20250408
  Serious: No
  Sender: MYLAN
  Company Number: US-MYLANLABS-2025M1014651

PATIENT
  Sex: Female

DRUGS (4)
  1. ESTRADIOL TRANSDERMAL SYSTEM [Suspect]
     Active Substance: ESTRADIOL
     Indication: Menopause
     Dosage: UNK, QW (0.05 EVERY WEEK)
  2. ESTRADIOL TRANSDERMAL SYSTEM [Suspect]
     Active Substance: ESTRADIOL
     Dosage: UNK, QW (0.05 EVERY WEEK)
     Route: 062
  3. ESTRADIOL TRANSDERMAL SYSTEM [Suspect]
     Active Substance: ESTRADIOL
     Dosage: UNK, QW (0.05 EVERY WEEK)
     Route: 062
  4. ESTRADIOL TRANSDERMAL SYSTEM [Suspect]
     Active Substance: ESTRADIOL
     Dosage: UNK, QW (0.05 EVERY WEEK)

REACTIONS (7)
  - Application site scab [Not Recovered/Not Resolved]
  - Application site wound [Recovered/Resolved]
  - Dermatitis contact [Not Recovered/Not Resolved]
  - Erythema [Unknown]
  - Urticaria [Unknown]
  - Rash [Unknown]
  - Product substitution issue [Unknown]
